FAERS Safety Report 9688629 (Version 1)
Quarter: 2013Q4

REPORT INFORMATION
  Report Type: Spontaneous
  Country: AT (occurrence: AT)
  Receive Date: 20131114
  Receipt Date: 20131114
  Transmission Date: 20140711
  Serious: Yes (Life-Threatening, Disabling)
  Sender: FDA-Public Use
  Company Number: AT-GLAXOSMITHKLINE-D0081627A

PATIENT
  Sex: Female
  Weight: 78 kg

DRUGS (1)
  1. ALLI [Suspect]
     Route: 048

REACTIONS (6)
  - Flatulence [Unknown]
  - Constipation [Recovered/Resolved]
  - Abdominal pain upper [Unknown]
  - Gastrointestinal disorder [Unknown]
  - Weight increased [Recovering/Resolving]
  - Depression [Recovering/Resolving]
